FAERS Safety Report 8766868 (Version 3)
Quarter: 2012Q4

REPORT INFORMATION
  Report Type: 
  Country: US (occurrence: US)
  Receive Date: 20120903
  Receipt Date: 20121212
  Transmission Date: 20130627
  Serious: Yes (Hospitalization)
  Sender: FDA-Public Use
  Company Number: US-BAYER-2012-088473

PATIENT
  Age: 31 Year
  Sex: Female
  Weight: 78.01 kg

DRUGS (20)
  1. OCELLA [Suspect]
     Indication: CONTRACEPTION
     Dosage: UNK
     Dates: start: 201003, end: 201104
  2. FLUCONAZOLE [Concomitant]
     Dosage: 150 mg, 1 tablet once weekly
     Dates: start: 200906
  3. TERCONAZOLE [Concomitant]
     Dosage: 0.4 %, HS Every night
     Route: 067
     Dates: start: 200906
  4. PERCOCET [Concomitant]
     Dosage: 10/325
  5. NABUMETONE [Concomitant]
     Dosage: 750 mg, UNK
     Dates: start: 200906
  6. PREDNISOLONE [Concomitant]
  7. OXYCODONE/APAP [Concomitant]
     Dosage: 5 mg, UNK
  8. OXYCODONE/APAP [Concomitant]
     Dosage: 325 mg, UNK
  9. BACTRIM DS [Concomitant]
  10. AZITHROMYCIN [Concomitant]
     Dosage: UNK
     Dates: start: 200906
  11. CEPHALEXIN [Concomitant]
     Dosage: UNK
     Dates: start: 200906
  12. CIPROFLOXACIN [Concomitant]
     Dosage: UNK
     Dates: start: 200906
  13. HYDROCODONE [Concomitant]
     Dosage: UNK
     Dates: start: 200906
  14. IBUPROFEN [Concomitant]
     Dosage: UNK
     Dates: start: 200906
  15. METRONIDAZOLE [Concomitant]
     Dosage: UNK
     Dates: start: 200906
  16. MUPIROCIN [Concomitant]
     Dosage: UNK
     Dates: start: 200906
  17. NAPROXEN [Concomitant]
     Dosage: UNK
     Dates: start: 200906
  18. OXYCODONE [Concomitant]
     Dosage: UNK
     Dates: start: 200906
  19. PHENTERMINE [Concomitant]
     Dosage: UNK
     Dates: start: 200906
  20. TRETINOIN [Concomitant]
     Dosage: UNK
     Dates: start: 200906

REACTIONS (7)
  - Pulmonary embolism [Recovered/Resolved]
  - Injury [Recovered/Resolved]
  - Pain [Recovered/Resolved]
  - General physical health deterioration [Recovered/Resolved]
  - Emotional distress [None]
  - Anxiety [None]
  - Pain [None]
